FAERS Safety Report 5952199-3 (Version None)
Quarter: 2008Q4

REPORT INFORMATION
  Report Type: 
  Country: None (occurrence: None)
  Receive Date: 20081113
  Receipt Date: 20081104
  Transmission Date: 20090506
  Serious: Yes (Hospitalization)
  Sender: FDA-Public Use
  Company Number: DE-ABBOTT-08P-062-0485614-00

PATIENT
  Sex: Female

DRUGS (9)
  1. HUMIRA [Suspect]
     Indication: CROHN'S DISEASE
     Route: 058
     Dates: start: 20080814
  2. PANTOPRAZOLE SODIUM [Concomitant]
     Indication: GASTRITIS
  3. ONAZID [Concomitant]
     Indication: DRUG USE FOR UNKNOWN INDICATION
  4. OXYCODONE HCL [Concomitant]
     Indication: ARTHRITIS
  5. OXYCODONE HCL [Concomitant]
     Indication: NEURODERMATITIS
  6. FENTANYL [Concomitant]
     Indication: ARTHRITIS
  7. FENTANYL [Concomitant]
     Indication: NEURODERMATITIS
  8. DULOXETINE HYDROCHLORIDE [Concomitant]
     Indication: ARTHRITIS
  9. DULOXETINE HYDROCHLORIDE [Concomitant]
     Indication: NEURODERMATITIS

REACTIONS (2)
  - GASTROINTESTINAL DISORDER [None]
  - PAIN [None]
